FAERS Safety Report 12894846 (Version 2)
Quarter: 2016Q4

REPORT INFORMATION
  Report Type: Spontaneous
  Country: JP (occurrence: JP)
  Receive Date: 20161028
  Receipt Date: 20161229
  Transmission Date: 20170207
  Serious: Yes (Death)
  Sender: FDA-Public Use
  Company Number: JP-ASTRAZENECA-2016SF11119

PATIENT
  Age: 57 Year
  Sex: Female

DRUGS (7)
  1. ATORVASTATIN [Concomitant]
     Active Substance: ATORVASTATIN
     Route: 048
  2. BOIOGITO [Concomitant]
     Dosage: DOSE UNKNOWN
     Route: 048
  3. CAMSHIA [Concomitant]
     Dosage: HIGH DOSE, DOSE UNKNOWN, EVERY DAY
     Route: 048
  4. FORXIGA [Suspect]
     Active Substance: DAPAGLIFLOZIN
     Indication: TYPE 2 DIABETES MELLITUS
     Route: 048
     Dates: start: 20141222
  5. SUINY [Concomitant]
     Active Substance: ANAGLIPTIN
     Route: 048
  6. SEIBULE [Concomitant]
     Active Substance: MIGLITOL
     Route: 048
  7. LANTUS [Concomitant]
     Active Substance: INSULIN GLARGINE
     Dosage: GENETICAL RECOMBINATION, 12 IU EVERY DAY
     Route: 058

REACTIONS (2)
  - Brain stem haemorrhage [Fatal]
  - Glycosylated haemoglobin increased [Unknown]

NARRATIVE: CASE EVENT DATE: 20161006
